FAERS Safety Report 7617430-7 (Version None)
Quarter: 2011Q3

REPORT INFORMATION
  Report Type: 
  Country: None (occurrence: None)
  Receive Date: 20110718
  Receipt Date: 20110714
  Transmission Date: 20111222
  Serious: No
  Sender: FDA-Public Use
  Company Number: US-PFIZER INC-2011160021

PATIENT
  Sex: Female

DRUGS (3)
  1. EFFEXOR XR [Suspect]
     Dosage: 150 MG, UNK
     Dates: start: 20110101, end: 20110708
  2. EFFEXOR XR [Suspect]
     Dosage: 75 MG, UNK
     Dates: start: 20100601, end: 20110101
  3. EFFEXOR XR [Suspect]
     Indication: DEPRESSION
     Dosage: 37.5 MG, UNK
     Route: 048
     Dates: start: 20090101, end: 20100601

REACTIONS (11)
  - NAUSEA [None]
  - DEPRESSED MOOD [None]
  - AGITATION [None]
  - SEDATION [None]
  - DIZZINESS [None]
  - BACK PAIN [None]
  - MALAISE [None]
  - FEELING ABNORMAL [None]
  - CONFUSIONAL STATE [None]
  - IRRITABILITY [None]
  - EMOTIONAL DISORDER [None]
